FAERS Safety Report 11972036 (Version 1)
Quarter: 2016Q1

REPORT INFORMATION
  Report Type: Report from Study
  Country: BR (occurrence: BR)
  Receive Date: 20160128
  Receipt Date: 20160128
  Transmission Date: 20160526
  Serious: Yes (Life-Threatening, Other)
  Sender: FDA-Public Use
  Company Number: PHHY2016BR007404

PATIENT
  Sex: Male
  Weight: 98 kg

DRUGS (3)
  1. LESCOL XL [Suspect]
     Active Substance: FLUVASTATIN SODIUM
     Indication: CARDIAC DISORDER
     Dosage: 80 MG, QD
     Route: 048
  2. DIOVAN [Suspect]
     Active Substance: VALSARTAN
     Indication: CARDIAC DISORDER
     Dosage: 1 DF, QD (160/25 MG)
     Route: 048
  3. DIOVAN [Suspect]
     Active Substance: VALSARTAN
     Dosage: 1 DF, QD (80/12.5 MG)
     Route: 065

REACTIONS (6)
  - Dyspnoea [Unknown]
  - Blood pressure abnormal [Unknown]
  - Cardiac arrest [Recovered/Resolved with Sequelae]
  - Cardiac disorder [Unknown]
  - Product use issue [Unknown]
  - Angina pectoris [Unknown]
